FAERS Safety Report 12113403 (Version 2)
Quarter: 2016Q1

REPORT INFORMATION
  Report Type: Other
  Country: US (occurrence: US)
  Receive Date: 20160225
  Receipt Date: 20160317
  Transmission Date: 20160526
  Serious: Yes (Hospitalization, Other)
  Sender: FDA-Public Use
  Company Number: US-SHIRE-US201601967

PATIENT
  Age: 28 Year
  Sex: Male
  Weight: 78.7 kg

DRUGS (7)
  1. RUCONEST [Concomitant]
     Active Substance: HUMAN C1-ESTERASE INHIBITOR
     Indication: HEREDITARY ANGIOEDEMA
     Dosage: 4200 UNITS (2 VIALS), AS REQ^D
     Route: 065
  2. DANAZOL. [Concomitant]
     Active Substance: DANAZOL
     Indication: HEREDITARY ANGIOEDEMA
     Dosage: 200 MG, 2X/DAY:BID
     Route: 048
     Dates: start: 20141007
  3. DANAZOL. [Concomitant]
     Active Substance: DANAZOL
     Indication: PROPHYLAXIS
  4. CINRYZE [Suspect]
     Active Substance: HUMAN C1-ESTERASE INHIBITOR
     Indication: HEREDITARY ANGIOEDEMA
     Dosage: 1000 UNITS, OTHER (EVERY 3 DAYS)
     Route: 042
     Dates: start: 201311
  5. RUCONEST [Concomitant]
     Active Substance: HUMAN C1-ESTERASE INHIBITOR
     Indication: PERIPHERAL SWELLING
  6. CINRYZE [Suspect]
     Active Substance: HUMAN C1-ESTERASE INHIBITOR
     Indication: PROPHYLAXIS
  7. FIRAZYR [Suspect]
     Active Substance: ICATIBANT ACETATE
     Indication: HEREDITARY ANGIOEDEMA
     Dosage: 30 MG, AS REQ^D
     Route: 058

REACTIONS (9)
  - Upper respiratory tract infection [Recovered/Resolved]
  - Hereditary angioedema [Recovering/Resolving]
  - Muscular weakness [Unknown]
  - Peripheral swelling [Recovering/Resolving]
  - Emotional distress [Unknown]
  - Hypoaesthesia [Recovering/Resolving]
  - Cyanosis [Unknown]
  - Paraesthesia [Unknown]
  - Poor peripheral circulation [Recovering/Resolving]

NARRATIVE: CASE EVENT DATE: 20160214
